FAERS Safety Report 9066704 (Version 2)
Quarter: 2013Q2

REPORT INFORMATION
  Report Type: Spontaneous
  Country: GB (occurrence: GB)
  Receive Date: 20130214
  Receipt Date: 20130403
  Transmission Date: 20140414
  Serious: Yes (Other)
  Sender: FDA-Public Use
  Company Number: GB-VERTEX PHARMACEUTICALS INC.-2013-002042

PATIENT
  Age: 57 Year
  Sex: Male
  Weight: 75 kg

DRUGS (6)
  1. INCIVO [Suspect]
     Indication: HEPATIC CIRRHOSIS
     Dosage: 750 MG, TID
     Route: 048
     Dates: start: 20120813, end: 20121212
  2. PEG-INTERFERON [Concomitant]
     Dosage: UNK
     Route: 065
  3. RIBAVIRIN [Concomitant]
     Dosage: UNK
     Route: 065
  4. SPIRONOLACTONE [Concomitant]
     Dosage: 50 MG, BID
     Dates: start: 20121112, end: 20130104
  5. CIPROFLOXACIN [Concomitant]
     Dosage: 500 MG, QD
     Dates: start: 20121112, end: 20130104
  6. CARVEDILOL [Concomitant]
     Dosage: 3.125 MG, QD
     Dates: start: 20121112

REACTIONS (3)
  - Liver disorder [Unknown]
  - Ascites [Recovered/Resolved]
  - Oedema peripheral [Recovered/Resolved]
